FAERS Safety Report 14572958 (Version 1)
Quarter: 2018Q1

REPORT INFORMATION
  Report Type: Spontaneous
  Country: US (occurrence: US)
  Receive Date: 20180223
  Receipt Date: 20180223
  Transmission Date: 20180509
  Serious: Yes (Other)
  Sender: FDA-Public Use
  Company Number: None

PATIENT
  Age: 54 Year
  Sex: Female
  Weight: 67.05 kg

DRUGS (2)
  1. DULOXETINE. [Suspect]
     Active Substance: DULOXETINE
     Indication: ANXIETY
     Dosage: ?          QUANTITY:1 CAPSULE(S);?
     Route: 048
     Dates: start: 20171223
  2. CYMBALTA [Suspect]
     Active Substance: DULOXETINE HYDROCHLORIDE
     Indication: ANXIETY
     Dosage: ?          QUANTITY:1 CAPSULE(S);?
     Route: 048
     Dates: start: 20170223

REACTIONS (25)
  - Panic attack [None]
  - Depression [None]
  - Limb discomfort [None]
  - Anxiety [None]
  - Muscle twitching [None]
  - Chills [None]
  - Tremor [None]
  - Crying [None]
  - Weight decreased [None]
  - Dry mouth [None]
  - Confusional state [None]
  - Therapy change [None]
  - Tachyphrenia [None]
  - Feeling of despair [None]
  - Psychiatric symptom [None]
  - Feeling abnormal [None]
  - Inability to afford medication [None]
  - Hyperhidrosis [None]
  - Fear [None]
  - Muscle spasms [None]
  - Heart rate increased [None]
  - Memory impairment [None]
  - Suicidal ideation [None]
  - Blood pressure decreased [None]
  - Impaired work ability [None]

NARRATIVE: CASE EVENT DATE: 20180202
